FAERS Safety Report 6636718-X (Version None)
Quarter: 2010Q1

REPORT INFORMATION
  Report Type: 
  Country: None (occurrence: None)
  Receive Date: 20100316
  Receipt Date: 20100308
  Transmission Date: 20100710
  Serious: Yes (Other)
  Sender: FDA-Public Use
  Company Number: B0638171A

PATIENT
  Age: 74 Year
  Sex: Female

DRUGS (5)
  1. ZINNAT [Suspect]
     Indication: BRONCHOPNEUMOPATHY
     Route: 048
     Dates: start: 20100106, end: 20100113
  2. LIPANTHYL [Suspect]
     Dosage: 1UNIT PER DAY
     Route: 048
     Dates: start: 20000101, end: 20100126
  3. DIPROSONE [Suspect]
     Indication: BRONCHOPNEUMOPATHY
     Dosage: 1UNIT PER DAY
     Route: 030
     Dates: start: 20100105, end: 20100105
  4. SOLUPRED [Concomitant]
     Dosage: 20MG PER DAY
     Route: 048
     Dates: start: 20000101
  5. SYMBICORT [Concomitant]
     Dosage: 1UNIT TWICE PER DAY
     Route: 055
     Dates: start: 20000101

REACTIONS (3)
  - LIPASE ABNORMAL [None]
  - LIVER FUNCTION TEST ABNORMAL [None]
  - PANCREATITIS ACUTE [None]
